FAERS Safety Report 15974702 (Version 1)
Quarter: 2019Q1

REPORT INFORMATION
  Report Type: Spontaneous
  Country: JP (occurrence: JP)
  Receive Date: 20190218
  Receipt Date: 20190218
  Transmission Date: 20190418
  Serious: Yes (Hospitalization, Other)
  Sender: FDA-Public Use
  Company Number: JP-TEVA-2019-JP-1014206

PATIENT
  Age: 9 Decade
  Sex: Female

DRUGS (8)
  1. ROZEREM [Concomitant]
     Active Substance: RAMELTEON
  2. THYRADIN S [Concomitant]
     Active Substance: LEVOTHYROXINE SODIUM
  3. LENDORMIN [Concomitant]
     Active Substance: BROTIZOLAM
  4. VIVIANT [Concomitant]
     Active Substance: BAZEDOXIFENE
  5. METLIGINE [Concomitant]
     Active Substance: MIDODRINE HYDROCHLORIDE
  6. EDIROL [Concomitant]
     Active Substance: ELDECALCITOL
  7. AZILECT [Suspect]
     Active Substance: RASAGILINE MESYLATE
     Indication: PARKINSON^S DISEASE
     Dosage: .5 MILLIGRAM DAILY;
     Route: 048
     Dates: start: 20180724, end: 201902
  8. MADOPAR [Concomitant]
     Active Substance: BENSERAZIDE HYDROCHLORIDE\LEVODOPA

REACTIONS (1)
  - Aortic dissection [Unknown]

NARRATIVE: CASE EVENT DATE: 201902
